FAERS Safety Report 15155500 (Version 1)
Quarter: 2018Q4

REPORT INFORMATION
  Report Type: Spontaneous
  Country: US (occurrence: US)
  Receive Date: 20180717
  Receipt Date: 20180717
  Transmission Date: 20190204
  Serious: No
  Sender: FDA-Public Use
  Company Number: US-TARO-2017TAR00808

PATIENT
  Age: 55 Year
  Sex: Female
  Weight: 79.37 kg

DRUGS (2)
  1. FLUOCINONIDE CREAM USP 0.05%. [Suspect]
     Active Substance: FLUOCINONIDE
     Indication: RASH
     Dosage: A SMALL AMOUNT 2X/DAY
     Route: 061
     Dates: start: 20170918, end: 20170919
  2. CLARITIN [Concomitant]
     Active Substance: LORATADINE

REACTIONS (2)
  - Burning sensation [Recovered/Resolved]
  - Drug ineffective [Recovered/Resolved]

NARRATIVE: CASE EVENT DATE: 20170918
